FAERS Safety Report 14109566 (Version 1)
Quarter: 2017Q4

REPORT INFORMATION
  Report Type: Spontaneous
  Country: US (occurrence: US)
  Receive Date: 20171020
  Receipt Date: 20171020
  Transmission Date: 20180321
  Serious: No
  Sender: FDA-Public Use
  Company Number: US-TEVA-730918ACC

PATIENT
  Sex: Female
  Weight: 55 kg

DRUGS (5)
  1. AMOXICILLIN W/CLAVULANIC ACID [Suspect]
     Active Substance: AMOXICILLIN\CLAVULANIC ACID
  2. TRIUMEQ 600 MG/50 MG/300MG [Concomitant]
  3. LISINOPRIL 10MG [Concomitant]
     Active Substance: LISINOPRIL
  4. BABY ASPIRIN 81MG [Concomitant]
  5. LIPITOR [Concomitant]
     Active Substance: ATORVASTATIN CALCIUM

REACTIONS (2)
  - Diarrhoea [Unknown]
  - Rash [Unknown]
